FAERS Safety Report 23404218 (Version 1)
Quarter: 2024Q1

REPORT INFORMATION
  Report Type: Spontaneous
  Country: US (occurrence: US)
  Receive Date: 20240116
  Receipt Date: 20240116
  Transmission Date: 20240410
  Serious: No
  Sender: FDA-Public Use
  Company Number: US-SANOFI-01902769

PATIENT
  Sex: Male

DRUGS (4)
  1. ADMELOG [Suspect]
     Active Substance: INSULIN LISPRO
     Indication: Type 1 diabetes mellitus
     Dosage: UNK
  2. ADMELOG [Suspect]
     Active Substance: INSULIN LISPRO
     Dosage: 10 U, TID
  3. ADMELOG [Suspect]
     Active Substance: INSULIN LISPRO
     Dosage: UNK UNK, BID
  4. INSULIN GLARGINE [Concomitant]
     Active Substance: INSULIN GLARGINE
     Dosage: 20 U, QD

REACTIONS (1)
  - Hypoglycaemia [Unknown]
